FAERS Safety Report 9019571 (Version 1)
Quarter: 2013Q1

REPORT INFORMATION
  Report Type: Report from Study
  Country: BE (occurrence: BE)
  Receive Date: 20130118
  Receipt Date: 20130118
  Transmission Date: 20140127
  Serious: Yes (Hospitalization)
  Sender: FDA-Public Use
  Company Number: BE-PFIZER INC-2013018493

PATIENT
  Age: 20 Year
  Sex: Male
  Weight: 140.5 kg

DRUGS (44)
  1. SOLU-CORTEF [Suspect]
     Indication: CHEMOTHERAPY
     Dosage: REGIMEN #1
     Route: 037
     Dates: start: 20121226, end: 20121226
  2. AMBISOME [Suspect]
     Indication: PROPHYLAXIS
     Dosage: 720 MG, CYCLICAL,TWICE WEEKLY,  FORMULATION; INJECTION
     Route: 042
     Dates: start: 20121122, end: 20121210
  3. PLACEBO [Suspect]
     Indication: PROPHYLAXIS
     Dosage: 720 MG, CYCLICAL,TWICE WEEKLY,FORMULATION: INJECTION
     Route: 042
     Dates: start: 20121122, end: 20121210
  4. DEXAMETHASONE [Suspect]
     Indication: CHEMOTHERAPY
     Dosage: UNK
     Route: 042
     Dates: start: 20121226, end: 20121226
  5. ONCOVIN [Suspect]
     Indication: CHEMOTHERAPY
     Dosage: REGIMEN #1
     Route: 023
     Dates: start: 20121226, end: 20121226
  6. ETOPOSIDE [Suspect]
     Indication: CHEMOTHERAPY
     Dosage: REGIMEN #1
     Route: 023
     Dates: start: 20121228, end: 20121230
  7. METHOTREXATE [Suspect]
     Indication: CHEMOTHERAPY
     Dosage: REGIMEN #1
     Route: 037
     Dates: start: 20121230, end: 20121230
  8. ARACYTINE [Suspect]
     Indication: CHEMOTHERAPY
     Dosage: REGIMEN # 1
     Route: 042
     Dates: start: 20121226, end: 20121227
  9. ARACYTINE [Suspect]
     Dosage: REGIMEN # 2
     Route: 039
     Dates: start: 20121230, end: 20121230
  10. GLUCOSE W/SODIUM CHLORIDE [Concomitant]
     Dosage: UNK
     Dates: start: 20121111, end: 20121231
  11. LITICAN [Concomitant]
     Dosage: UNK
     Dates: start: 20121111, end: 20121230
  12. EUSAPRIM [Concomitant]
     Dosage: UNK
     Dates: start: 20121112
  13. PANTOPRAZOLE SODIUM [Concomitant]
     Dosage: UNK
     Dates: start: 20121112
  14. FOLAVIT [Concomitant]
     Dosage: UNK
     Dates: start: 20121119
  15. CIPROFLOXACIN [Concomitant]
     Dosage: UNK
     Dates: start: 20121121
  16. TRIANAL [Concomitant]
     Dosage: UNK
     Dates: start: 20121121, end: 20121205
  17. CONTRAMAL [Concomitant]
     Dosage: UNK
     Dates: start: 20121111, end: 20121220
  18. BISOPROLOL [Concomitant]
     Dosage: UNK
     Dates: start: 20121112
  19. SOLU-MEDROL [Concomitant]
     Dosage: UNK
     Dates: start: 20121112, end: 20121211
  20. REDOMEX [Concomitant]
     Dosage: UNK
     Dates: start: 20121121
  21. TEMESTA [Concomitant]
     Dosage: UNK
     Dates: start: 20121121
  22. LAXOBERON [Concomitant]
     Dosage: UNK
     Dates: start: 20121124
  23. DAFALGAN [Concomitant]
     Dosage: UNK
     Dates: start: 20121121, end: 20121207
  24. MAGNETOP [Concomitant]
     Dosage: UNK
     Dates: start: 20121130, end: 20121211
  25. ANTITHROMBIN III [Concomitant]
     Dosage: UNK
     Dates: start: 20121202, end: 20121208
  26. D-CURE [Concomitant]
     Dosage: UNK
     Dates: start: 20121119, end: 20121231
  27. MEDROL [Concomitant]
     Dosage: UNK
     Dates: start: 20121212, end: 20121217
  28. FASTURTEC [Concomitant]
     Dosage: UNK
     Dates: start: 20121222, end: 20121222
  29. MIDAZOLAM [Concomitant]
     Dosage: UNK
     Dates: start: 20121216, end: 20121230
  30. ISOBETADINE [Concomitant]
     Dosage: UNK
     Dates: start: 20121113, end: 20121231
  31. KCL [Concomitant]
     Dosage: UNK
     Dates: start: 20121218, end: 20121220
  32. OXYNORM [Concomitant]
  33. METHYLENE BLUE [Concomitant]
     Dosage: UNK
     Dates: start: 20121204, end: 20121210
  34. SCHERIPROCT [Concomitant]
     Dosage: UNK
     Dates: start: 20121207, end: 20121211
  35. KALEORID [Concomitant]
     Dosage: UNK
     Dates: start: 20121219
  36. LYSANXIA [Concomitant]
     Dosage: UNK
     Dates: start: 20121220
  37. ZOFRAN [Concomitant]
     Dosage: UNK
     Dates: start: 20121226, end: 20121231
  38. TRANXENE [Concomitant]
     Dosage: UNK
     Dates: start: 20121228, end: 20121230
  39. SIPRALEXA [Concomitant]
     Dosage: UNK
     Dates: start: 20121228, end: 20121231
  40. NEUPOGEN [Concomitant]
     Dosage: UNK
     Dates: start: 20130101
  41. LASIX [Concomitant]
     Dosage: UNK
     Dates: start: 20121227, end: 20121231
  42. PYRIDOXINE [Concomitant]
     Dosage: UNK
     Dates: start: 20121227, end: 20121231
  43. CLEXANE [Concomitant]
     Dosage: UNK
     Dates: start: 20121208, end: 20121230
  44. ZOVIRAX [Concomitant]
     Dosage: UNK
     Dates: start: 20121112

REACTIONS (1)
  - Febrile neutropenia [Unknown]
